FAERS Safety Report 8493518-6 (Version None)
Quarter: 2012Q2

REPORT INFORMATION
  Report Type: 
  Country: None (occurrence: None)
  Receive Date: 20120627
  Receipt Date: 20120615
  Transmission Date: 20120825
  Serious: Yes (Disabling, Other)
  Sender: FDA-Public Use
  Company Number: 2012SP028808

PATIENT
  Age: 19 Year
  Sex: Female

DRUGS (1)
  1. NEXPLANON (ETONOGESTREL /01293201/) [Suspect]
     Indication: PRODUCT USED FOR UNKNOWN INDICATION
     Dosage: 1 DF
     Dates: start: 20101201

REACTIONS (2)
  - HEADACHE [None]
  - FIBROMYALGIA [None]
